FAERS Safety Report 20433100 (Version 1)
Quarter: 2022Q1

REPORT INFORMATION
  Report Type: Spontaneous
  Country: US (occurrence: US)
  Receive Date: 20220205
  Receipt Date: 20220205
  Transmission Date: 20220424
  Serious: No
  Sender: FDA-Public Use
  Company Number: US-SA-SAC20220131001497

PATIENT
  Age: 64 Year
  Sex: Female

DRUGS (7)
  1. DUPIXENT [Suspect]
     Active Substance: DUPILUMAB
     Indication: Seborrhoeic dermatitis
     Dosage: UNK UNK, QOW
     Route: 058
     Dates: start: 20211127
  2. BOOSTRIX [Concomitant]
     Active Substance: TETANUS TOXOID, REDUCED DIPHTHERIA TOXOID AND ACELLULAR PERTUSSIS VACCINE, ADSORBED ANTIGENS
  3. EC NAPROXEN [Concomitant]
     Dosage: 500 MG
  4. REPATHA [Concomitant]
     Active Substance: EVOLOCUMAB
  5. HYDROXYZINE HYDROCHLORIDE [Concomitant]
     Active Substance: HYDROXYZINE HYDROCHLORIDE
  6. METHYLPREDNISOLONE [Concomitant]
     Active Substance: METHYLPREDNISOLONE
  7. BETAMETH DIPROPIONATE [Concomitant]
     Dosage: 5005MG

REACTIONS (3)
  - Herpes zoster [Unknown]
  - Rash [Unknown]
  - Injection site reaction [Unknown]
